FAERS Safety Report 12335475 (Version 1)
Quarter: 2016Q2

REPORT INFORMATION
  Report Type: Spontaneous
  Country: TR (occurrence: TR)
  Receive Date: 20160504
  Receipt Date: 20160504
  Transmission Date: 20160815
  Serious: Yes (Other)
  Sender: FDA-Public Use
  Company Number: TR-UCBSA-2016016221

PATIENT
  Age: 15 Year
  Sex: Male

DRUGS (6)
  1. NOOTROPIL [Suspect]
     Active Substance: PIRACETAM
     Indication: LAFORA^S MYOCLONIC EPILEPSY
     Dosage: UNKNOWN DOSE
  2. SODIUM VALPROATE [Concomitant]
     Active Substance: VALPROATE SODIUM
     Indication: LAFORA^S MYOCLONIC EPILEPSY
     Dosage: UNKNOWN DOSE
  3. CLONAZEPAM. [Concomitant]
     Active Substance: CLONAZEPAM
     Indication: LAFORA^S MYOCLONIC EPILEPSY
     Dosage: UNKNOWN DOSE
  4. TOPIRAMATE. [Concomitant]
     Active Substance: TOPIRAMATE
     Indication: LAFORA^S MYOCLONIC EPILEPSY
     Dosage: UNKNOWN DOSE
  5. CLOBAZAM [Concomitant]
     Active Substance: CLOBAZAM
     Indication: LAFORA^S MYOCLONIC EPILEPSY
     Dosage: UNKNOWN DOSE
  6. KEPPRA [Suspect]
     Active Substance: LEVETIRACETAM
     Indication: LAFORA^S MYOCLONIC EPILEPSY
     Dosage: UNKNOWN DOSE

REACTIONS (2)
  - Myoclonus [Recovering/Resolving]
  - Status epilepticus [Recovered/Resolved]
